FAERS Safety Report 6862171-7 (Version None)
Quarter: 2010Q3

REPORT INFORMATION
  Report Type: 
  Country: None (occurrence: None)
  Receive Date: 20100719
  Receipt Date: 20100706
  Transmission Date: 20110219
  Serious: Yes (Death, Other)
  Sender: FDA-Public Use
  Company Number: 2010070009

PATIENT
  Age: 32 Year
  Sex: Female

DRUGS (7)
  1. CARISOPRODOL [Suspect]
  2. MORPHINE [Suspect]
  3. COCAINE (COCAINE) [Suspect]
  4. HYDROCODONE BITARTRATE [Suspect]
  5. ALPRAZOLAM [Suspect]
  6. SERTRALINE (SERTRALINE) [Concomitant]
  7. MEPROBAMATE [Suspect]

REACTIONS (3)
  - DROWNING [None]
  - DRUG ABUSE [None]
  - MULTIPLE INJURIES [None]
